FAERS Safety Report 9602574 (Version 2)
Quarter: 2013Q4

REPORT INFORMATION
  Report Type: Spontaneous
  Country: US (occurrence: US)
  Receive Date: 20131007
  Receipt Date: 20131107
  Transmission Date: 20140711
  Serious: No
  Sender: FDA-Public Use
  Company Number: US-PFIZER INC-2013283721

PATIENT
  Age: 67 Year
  Sex: Female
  Weight: 70.75 kg

DRUGS (3)
  1. LYRICA [Suspect]
     Indication: NEUROPATHY PERIPHERAL
     Dosage: 100 MG, 1X/DAY
  2. LYRICA [Suspect]
     Dosage: 50 MG, 2X/DAY
     Dates: start: 20130930
  3. LEVOTHYROXINE [Concomitant]
     Indication: THYROID DISORDER
     Dosage: 112 UG, 1X/DAY

REACTIONS (5)
  - Amnesia [Unknown]
  - Weight increased [Unknown]
  - Glucose tolerance impaired [Unknown]
  - Alopecia [Unknown]
  - Pain [Unknown]
